FAERS Safety Report 6123608-4 (Version None)
Quarter: 2009Q1

REPORT INFORMATION
  Report Type: 
  Country: None (occurrence: None)
  Receive Date: 20090319
  Receipt Date: 20090311
  Transmission Date: 20090719
  Serious: Yes (Death, Other)
  Sender: FDA-Public Use
  Company Number: PHHY2008JP13834

PATIENT
  Sex: Female

DRUGS (5)
  1. ZOLEDRONIC ACID [Suspect]
     Dosage: 4 MG, QMO
     Route: 042
     Dates: start: 20061113, end: 20080201
  2. VOLTAREN [Suspect]
     Dosage: 50 MG
     Route: 048
     Dates: start: 20080201, end: 20080229
  3. AROMASIN [Concomitant]
     Dosage: 25 MG, UNK
     Route: 048
     Dates: start: 20061113
  4. AROMASIN [Concomitant]
     Dosage: 25 MG, UNK
     Route: 048
     Dates: end: 20080313
  5. FARESTON ^LAAKEFARMOS^ [Concomitant]
     Dosage: 120 MG
     Route: 048
     Dates: start: 20070526, end: 20080110

REACTIONS (9)
  - BLOOD CREATININE INCREASED [None]
  - BLOOD UREA INCREASED [None]
  - CONDITION AGGRAVATED [None]
  - DYSPNOEA [None]
  - MALIGNANT NEOPLASM PROGRESSION [None]
  - METASTASES TO LYMPH NODES [None]
  - PARALYSIS [None]
  - PLEURAL EFFUSION [None]
  - RENAL IMPAIRMENT [None]
